FAERS Safety Report 21086370 (Version 6)
Quarter: 2025Q2

REPORT INFORMATION
  Report Type: Report from Study
  Country: US (occurrence: US)
  Receive Date: 20220715
  Receipt Date: 20250429
  Transmission Date: 20250716
  Serious: Yes (Other)
  Sender: ABBVIE
  Company Number: US-ABBVIE-22K-163-4468331-00

PATIENT
  Age: 59 Year
  Sex: Female

DRUGS (6)
  1. HUMIRA [Suspect]
     Active Substance: ADALIMUMAB
     Indication: Product used for unknown indication
     Route: 058
  2. IMBRUVICA [Suspect]
     Active Substance: IBRUTINIB
     Indication: Chronic lymphocytic leukaemia
     Route: 048
     Dates: start: 20160816
  3. IMBRUVICA [Suspect]
     Active Substance: IBRUTINIB
     Indication: Chronic lymphocytic leukaemia
     Route: 048
     Dates: start: 20220328
  4. IMBRUVICA [Suspect]
     Active Substance: IBRUTINIB
     Indication: Chronic lymphocytic leukaemia
     Route: 048
     Dates: start: 202304
  5. MODERNA COVID-19 VACCINE [Concomitant]
     Active Substance: ELASOMERAN
     Indication: COVID-19 immunisation
     Route: 030
  6. MODERNA COVID-19 VACCINE [Concomitant]
     Active Substance: ELASOMERAN
     Indication: COVID-19 immunisation
     Route: 030

REACTIONS (17)
  - Oesophagogastric fundoplasty [Recovering/Resolving]
  - Hiatus hernia [Recovering/Resolving]
  - Oesophagitis chemical [Unknown]
  - Surgery [Unknown]
  - Skin fissures [Recovering/Resolving]
  - Endocrine disorder [Unknown]
  - Postpartum hypopituitarism [Unknown]
  - Blood glucose decreased [Unknown]
  - Back pain [Unknown]
  - Compression fracture [Unknown]
  - Pneumonia [Unknown]
  - Surgical failure [Unknown]
  - Bronchitis [Unknown]
  - Physical disability [Unknown]
  - Emotional disorder [Unknown]
  - Social problem [Unknown]
  - Restlessness [Unknown]

NARRATIVE: CASE EVENT DATE: 20180101
